FAERS Safety Report 19406178 (Version 1)
Quarter: 2021Q2

REPORT INFORMATION
  Report Type: Spontaneous
  Country: NL (occurrence: FR)
  Receive Date: 20210611
  Receipt Date: 20210611
  Transmission Date: 20210717
  Serious: Yes (Other)
  Sender: FDA-Public Use
  Company Number: FR-FRESENIUS KABI-FK202105666

PATIENT
  Age: 67 Year
  Sex: Male
  Weight: 80 kg

DRUGS (9)
  1. SUFENTANIL [Suspect]
     Active Substance: SUFENTANIL
     Indication: SEDATION
     Dosage: 10 UG/HEURE // 10 MCG/H?DELAI 1ERE ADMINISTRATION : J16 // DELAY 1ST ADMINISTRATION : D16
     Route: 042
     Dates: start: 20210414, end: 20210524
  2. AMLODIPINE [Suspect]
     Active Substance: AMLODIPINE BESYLATE
     Indication: HYPERTENSION
     Route: 048
     Dates: start: 20210510, end: 20210511
  3. PIPERACILLIN SODIUM/TAZOBACTAM SODIUM [Suspect]
     Active Substance: PIPERACILLIN SODIUM\TAZOBACTAM SODIUM
     Indication: INFECTION
     Route: 042
     Dates: start: 20210428, end: 20210429
  4. ENOXAPARIN SODIUM. [Suspect]
     Active Substance: ENOXAPARIN SODIUM
     Indication: THROMBOSIS PROPHYLAXIS
     Dosage: 0.8 ML 2 FOIS PAR JOUR // 0.8 ML 2 TIMES PER DAY
     Route: 058
     Dates: start: 20210414
  5. FUROSEMIDE. [Suspect]
     Active Substance: FUROSEMIDE
     Indication: HYPERTENSION
     Dosage: 40 MG ONCE DAILY
     Route: 042
     Dates: start: 20210426, end: 20210430
  6. PROPOFOL (MANUFACTURER UNKNOWN) [Suspect]
     Active Substance: PROPOFOL
     Indication: SEDATION
     Dosage: DELAI 1ERE ADMINISTRATION : J16 // DELAY 1ST ADMINISTRATION : D16
     Route: 042
     Dates: start: 20210414, end: 20210511
  7. URAPIDIL [Suspect]
     Active Substance: URAPIDIL
     Indication: HYPERTENSION
     Dosage: 232 MG, 13 MG/HEURE // 232MG, 13 MG/HOUR?DELAI 1ERE ADMINISTRATION : J4 // DELAY 1ST ADMINISTRATION
     Route: 042
     Dates: start: 20210426, end: 20210430
  8. NICARDIPINE [Suspect]
     Active Substance: NICARDIPINE
     Indication: HYPERTENSION
     Dosage: 2 MG/H?DELAI 1ERE ADMINISTRATION : J11 // DELAY 1ST ADMINISTRATION : D11
     Route: 042
     Dates: start: 20210418, end: 20210418
  9. MIDAZOLAM. [Suspect]
     Active Substance: MIDAZOLAM
     Indication: SEDATION
     Dosage: DELAI 1ERE ADMINISTRATION : J10 // DELAY 1ST ADMINISTRATION : D10
     Route: 042
     Dates: start: 20210419, end: 20210509

REACTIONS (1)
  - Drug reaction with eosinophilia and systemic symptoms [Recovering/Resolving]

NARRATIVE: CASE EVENT DATE: 20210429
